FAERS Safety Report 23355871 (Version 1)
Quarter: 2024Q1

REPORT INFORMATION
  Report Type: Spontaneous
  Country: BR (occurrence: BR)
  Receive Date: 20240102
  Receipt Date: 20240102
  Transmission Date: 20240410
  Serious: Yes (Other)
  Sender: FDA-Public Use
  Company Number: BR-BAXTER-2023BAX036898

PATIENT
  Age: 58 Year
  Sex: Female
  Weight: 76 kg

DRUGS (2)
  1. IRON [Suspect]
     Active Substance: IRON
     Indication: Iron deficiency
     Dosage: 2 AMPOULES DILUTED IN 500 ML OF SALINE SOLUTION (FOR APPROXIMATELY ONE HOUR AND A HALF)
     Route: 042
     Dates: start: 20231122, end: 20231122
  2. SODIUM CHLORIDE [Suspect]
     Active Substance: SODIUM CHLORIDE
     Indication: Medication dilution
     Dosage: 500 ML OF SALINE SOLUTION DILUTED IN 2 AMPOULES OF SUCROFER (FOR APPROXIMATELY ONE HOUR AND A HALF)
     Route: 042
     Dates: start: 20231122, end: 20231122

REACTIONS (8)
  - Gait disturbance [Recovered/Resolved]
  - Skin plaque [Recovered/Resolved]
  - Joint swelling [Recovered/Resolved]
  - Nausea [Recovered/Resolved]
  - Vomiting [Recovered/Resolved]
  - Oedema peripheral [Recovered/Resolved]
  - Urticaria [Recovered/Resolved]
  - Hypotension [Recovered/Resolved]

NARRATIVE: CASE EVENT DATE: 20231122
